FAERS Safety Report 14628077 (Version 1)
Quarter: 2018Q1

REPORT INFORMATION
  Report Type: Spontaneous
  Country: US (occurrence: US)
  Receive Date: 20180312
  Receipt Date: 20180312
  Transmission Date: 20180509
  Serious: No
  Sender: FDA-Public Use
  Company Number: US-ALLERGAN-1711446US

PATIENT
  Age: 55 Year
  Sex: Female

DRUGS (2)
  1. ESTRACE [Suspect]
     Active Substance: ESTRADIOL
     Indication: VAGINAL DISORDER
     Dosage: UNK, UNKNOWN
     Route: 065
     Dates: start: 2016
  2. ESTRACE [Suspect]
     Active Substance: ESTRADIOL
     Indication: SEXUALLY ACTIVE
     Dosage: 1 G, UNK
     Route: 061
     Dates: start: 20170315

REACTIONS (4)
  - Abdominal pain lower [Recovered/Resolved]
  - Bladder pain [Not Recovered/Not Resolved]
  - Abdominal pain lower [Not Recovered/Not Resolved]
  - Abdominal discomfort [Not Recovered/Not Resolved]

NARRATIVE: CASE EVENT DATE: 2016
